FAERS Safety Report 10128658 (Version 1)
Quarter: 2014Q2

REPORT INFORMATION
  Report Type: Spontaneous
  Country: FR (occurrence: FR)
  Receive Date: 20140428
  Receipt Date: 20140428
  Transmission Date: 20141212
  Serious: Yes (Other)
  Sender: FDA-Public Use
  Company Number: FR-JNJFOC-20140410293

PATIENT
  Age: 34 Year
  Sex: Male

DRUGS (2)
  1. RISPERDAL [Suspect]
     Indication: MENTAL DISORDER
     Route: 048
     Dates: start: 20130501, end: 20140305
  2. XARELTO [Concomitant]
     Indication: PULMONARY EMBOLISM
     Route: 048
     Dates: start: 20130703, end: 20140221

REACTIONS (3)
  - Pulmonary embolism [Recovered/Resolved]
  - Pulmonary embolism [Recovered/Resolved]
  - Haemoptysis [Recovered/Resolved]
